FAERS Safety Report 7499013 (Version 3)
Quarter: 2013Q2

REPORT INFORMATION
  Report Type: Spontaneous
  Country: GB (occurrence: GB)
  Receive Date: 20100723
  Receipt Date: 20130410
  Transmission Date: 20140414
  Serious: Yes (Hospitalization)
  Sender: FDA-Public Use
  Company Number: B0666045A

PATIENT
  Age: 22 Year
  Sex: Female

DRUGS (3)
  1. ERYTHROMYCIN [Suspect]
     Indication: ASTHMA
     Dosage: UNKNOWN
  2. PREDNISOLONE [Suspect]
     Indication: ASTHMA
     Dosage: UNKNOWN
  3. BETAMETHASONE (FORMULATION UNKNOWN) (BETAMETHASONE) (GENERIC) [Suspect]
     Route: 042

REACTIONS (8)
  - KUSSMAUL RESPIRATION [Recovered/Resolved]
  - HYPERTENSION [Unknown]
  - KETOACIDOSIS [Unknown]
  - SINUS TACHYCARDIA [Unknown]
  - MALAISE [Unknown]
  - VOMITING [Unknown]
  - LIVE BIRTH [Unknown]
  - Maternal exposure during pregnancy [Unknown]
